FAERS Safety Report 16021930 (Version 1)
Quarter: 2019Q2

REPORT INFORMATION
  Report Type: Spontaneous
  Country: US (occurrence: US)
  Receive Date: 20190301
  Receipt Date: 20190301
  Transmission Date: 20190711
  Serious: Yes (Other)
  Sender: FDA-Public Use
  Company Number: None

PATIENT
  Age: 9 Year
  Sex: Male
  Weight: 31.5 kg

DRUGS (1)
  1. TAMIFLU [Suspect]
     Active Substance: OSELTAMIVIR PHOSPHATE
     Indication: INFLUENZA LIKE ILLNESS
     Dosage: ?          QUANTITY:10 TABLESPOON(S);?
     Route: 048
     Dates: start: 20190228, end: 20190228

REACTIONS (7)
  - Vomiting [None]
  - Influenza [None]
  - Hallucination [None]
  - Incoherent [None]
  - Pyrexia [None]
  - Confusional state [None]
  - Aphasia [None]

NARRATIVE: CASE EVENT DATE: 20190228
